FAERS Safety Report 7043800-4 (Version None)
Quarter: 2010Q4

REPORT INFORMATION
  Report Type: 
  Country: None (occurrence: None)
  Receive Date: 20101008
  Receipt Date: 20101008
  Transmission Date: 20110411
  Serious: Yes (Life-Threatening)
  Sender: FDA-Public Use
  Company Number: None

PATIENT
  Age: 51 Year
  Sex: Female

DRUGS (1)
  1. MERCAPTOPURINE [Suspect]
     Indication: LIVER DISORDER
     Dosage: PO STARTED IN LATE 2009
     Route: 048
     Dates: start: 20090101

REACTIONS (1)
  - CHOLESTASIS [None]
